FAERS Safety Report 8117381-8 (Version None)
Quarter: 2012Q1

REPORT INFORMATION
  Report Type: 
  Country: None (occurrence: None)
  Receive Date: 20120206
  Receipt Date: 20120125
  Transmission Date: 20120608
  Serious: Yes (Hospitalization)
  Sender: FDA-Public Use
  Company Number: DE-BRISTOL-MYERS SQUIBB COMPANY-16267163

PATIENT
  Age: 68 Year
  Sex: Female
  Weight: 50 kg

DRUGS (5)
  1. BISOPROLOL FUMARATE [Concomitant]
     Indication: HYPERTENSION
     Route: 048
     Dates: start: 20110901
  2. IBUPROFEN [Concomitant]
     Route: 048
  3. ERBITUX [Suspect]
     Indication: COLORECTAL CANCER METASTATIC
     Dosage: 400MG/M2 17AUG11-; 250MG/M2 24AUG-07SEP11(14DAYS),09-23NOV11(14DAYS).DISCONT 28NOV12
     Route: 042
     Dates: start: 20110817, end: 20111123
  4. DOXEPIN HCL [Concomitant]
     Indication: SEDATION
     Route: 048
     Dates: start: 20110711, end: 20111210
  5. PANTOPRAZOLE [Concomitant]
     Route: 048

REACTIONS (3)
  - DIZZINESS [None]
  - VOMITING [None]
  - DIARRHOEA [None]
